FAERS Safety Report 9050370 (Version 1)
Quarter: 2013Q1

REPORT INFORMATION
  Report Type: Spontaneous
  Country: IT (occurrence: IT)
  Receive Date: 20130205
  Receipt Date: 20130205
  Transmission Date: 20140127
  Serious: Yes (Hospitalization)
  Sender: FDA-Public Use
  Company Number: IT-BAYER-2013-011985

PATIENT
  Age: 49 Year
  Sex: Male

DRUGS (1)
  1. ACETYLSALICYLIC ACID [Suspect]
     Indication: INFLUENZA
     Dosage: 500 MG, QD
     Route: 048
     Dates: start: 20130115, end: 20130118

REACTIONS (1)
  - Haemoptysis [Recovering/Resolving]
